FAERS Safety Report 4461905-9 (Version None)
Quarter: 2004Q3

REPORT INFORMATION
  Report Type: 
  Country: None (occurrence: None)
  Receive Date: 20040929
  Receipt Date: 20031114
  Transmission Date: 20050211
  Serious: No
  Sender: FDA-Public Use
  Company Number: US-GLAXOSMITHKLINE-A0439843A

PATIENT
  Age: 50 Year
  Sex: Female

DRUGS (6)
  1. SEREVENT [Suspect]
     Indication: ASTHMA
     Dosage: 1PUFF TWICE PER DAY
     Route: 055
     Dates: start: 20031110
  2. SINGULAIR [Concomitant]
  3. VENTOLIN [Concomitant]
  4. FLOVENT [Concomitant]
  5. ASPIRIN [Concomitant]
  6. PSEUDOEPHEDRINE HCL [Concomitant]

REACTIONS (1)
  - DRUG INEFFECTIVE [None]
